FAERS Safety Report 7278456-9 (Version None)
Quarter: 2011Q1

REPORT INFORMATION
  Report Type: 
  Country: None (occurrence: None)
  Receive Date: 20110207
  Receipt Date: 20110125
  Transmission Date: 20110831
  Serious: Yes (Other)
  Sender: FDA-Public Use
  Company Number: FR-PFIZER INC-2011025630

PATIENT
  Age: 62 Year
  Sex: Male

DRUGS (3)
  1. KEPPRA [Suspect]
     Dosage: UNK
     Route: 048
  2. LAMICTAL [Concomitant]
     Dosage: UNK
     Route: 048
  3. ATARAX [Suspect]
     Dosage: 50 MG, UNK
     Route: 048

REACTIONS (3)
  - SOMNOLENCE [None]
  - SUICIDAL IDEATION [None]
  - FATIGUE [None]
